FAERS Safety Report 7385344-6 (Version None)
Quarter: 2011Q1

REPORT INFORMATION
  Report Type: 
  Country: None (occurrence: None)
  Receive Date: 20110330
  Receipt Date: 20100924
  Transmission Date: 20110831
  Serious: No
  Sender: FDA-Public Use
  Company Number: US-MYLANLABS-2010S1017815

PATIENT
  Age: 45 Year
  Sex: Female

DRUGS (3)
  1. EMSAM [Suspect]
     Indication: DEPRESSION
     Dosage: QD
     Route: 062
     Dates: start: 20100701, end: 20100701
  2. EMSAM [Suspect]
     Dosage: QD
     Route: 062
     Dates: start: 20100801, end: 20100801
  3. EMSAM [Suspect]
     Dosage: QD
     Route: 062
     Dates: start: 20100901

REACTIONS (3)
  - APPLICATION SITE PRURITUS [None]
  - APPLICATION SITE ERYTHEMA [None]
  - APPLICATION SITE RASH [None]
